FAERS Safety Report 20850613 (Version 7)
Quarter: 2022Q3

REPORT INFORMATION
  Report Type: Spontaneous
  Country: US (occurrence: US)
  Receive Date: 20220519
  Receipt Date: 20220809
  Transmission Date: 20221027
  Serious: Yes (Other)
  Sender: FDA-Public Use
  Company Number: US-PFIZER INC-202200702674

PATIENT
  Age: 53 Year
  Sex: Female
  Weight: 73.016 kg

DRUGS (1)
  1. IBRANCE [Suspect]
     Active Substance: PALBOCICLIB
     Dosage: 125 MG, CYCLIC
     Dates: end: 20220602

REACTIONS (15)
  - Pneumonia [Unknown]
  - Hallucination [Unknown]
  - Headache [Unknown]
  - Nausea [Unknown]
  - Decreased appetite [Unknown]
  - Vomiting [Unknown]
  - Dysgeusia [Unknown]
  - Weight decreased [Unknown]
  - Constipation [Unknown]
  - Feeding disorder [Unknown]
  - Dysphagia [Unknown]
  - Anosmia [Unknown]
  - Muscle spasms [Unknown]
  - Anxiety [Unknown]
  - Dizziness [Unknown]
